FAERS Safety Report 8329867-1 (Version None)
Quarter: 2012Q2

REPORT INFORMATION
  Report Type: 
  Country: None (occurrence: None)
  Receive Date: 20120502
  Receipt Date: 20120419
  Transmission Date: 20120825
  Serious: Yes (Other)
  Sender: FDA-Public Use
  Company Number: CA-ROCHE-1028735

PATIENT
  Sex: Female
  Weight: 96.112 kg

DRUGS (6)
  1. XOLAIR [Suspect]
     Route: 058
     Dates: start: 20100318, end: 20100908
  2. XOLAIR [Suspect]
     Indication: ASTHMA
     Route: 058
     Dates: start: 20100219
  3. XOLAIR [Suspect]
     Route: 058
     Dates: start: 20100305
  4. ADVAIR DISKUS 100/50 [Concomitant]
  5. VENTOLIN [Concomitant]
  6. SINGULAIR [Concomitant]

REACTIONS (7)
  - HYPERSENSITIVITY [None]
  - INFLUENZA [None]
  - INJECTION SITE PAIN [None]
  - RASH GENERALISED [None]
  - LOWER RESPIRATORY TRACT INFECTION [None]
  - URTICARIA [None]
  - URINARY TRACT INFECTION [None]
